FAERS Safety Report 10215542 (Version 3)
Quarter: 2014Q2

REPORT INFORMATION
  Report Type: Report from Study
  Country: VE (occurrence: VE)
  Receive Date: 20140604
  Receipt Date: 20140617
  Transmission Date: 20141212
  Serious: Yes (Hospitalization)
  Sender: FDA-Public Use
  Company Number: VE-ROCHE-1399512

PATIENT
  Sex: Male
  Weight: 40 kg

DRUGS (2)
  1. XOLAIR [Suspect]
     Indication: ASTHMA
     Route: 058
  2. XOLAIR [Suspect]
     Route: 058
     Dates: start: 201205, end: 201205

REACTIONS (3)
  - Rhinitis [Not Recovered/Not Resolved]
  - Drug ineffective [Unknown]
  - Food allergy [Unknown]
